FAERS Safety Report 5951198-5 (Version None)
Quarter: 2008Q4

REPORT INFORMATION
  Report Type: 
  Country: None (occurrence: None)
  Receive Date: 20081111
  Receipt Date: 20081111
  Transmission Date: 20090506
  Serious: Yes (Other)
  Sender: FDA-Public Use
  Company Number: None

PATIENT
  Age: 51 Year
  Sex: Male
  Weight: 79.8331 kg

DRUGS (4)
  1. OMEPRAZOLE [Suspect]
     Indication: NAUSEA
     Dosage: 20 MG ONCE A DAY PO
     Route: 048
     Dates: start: 20081108, end: 20081110
  2. OMEPRAZOLE [Suspect]
     Indication: VOMITING
     Dosage: 20 MG ONCE A DAY PO
     Route: 048
     Dates: start: 20081108, end: 20081110
  3. METOCLOPRAMIDE [Suspect]
     Indication: NAUSEA
     Dosage: 10MG 3X A DAY PO
     Route: 048
     Dates: start: 20081108, end: 20081110
  4. METOCLOPRAMIDE [Suspect]
     Indication: VOMITING
     Dosage: 10MG 3X A DAY PO
     Route: 048
     Dates: start: 20081108, end: 20081110

REACTIONS (4)
  - ABDOMINAL DISCOMFORT [None]
  - DRUG INEFFECTIVE [None]
  - FLATULENCE [None]
  - PAIN [None]
